FAERS Safety Report 10136782 (Version 1)
Quarter: 2014Q2

REPORT INFORMATION
  Report Type: Spontaneous
  Country: US (occurrence: US)
  Receive Date: 20140429
  Receipt Date: 20140429
  Transmission Date: 20141212
  Serious: No
  Sender: FDA-Public Use
  Company Number: US-MYLANLABS-2013S1021792

PATIENT
  Age: 82 Year
  Sex: Female

DRUGS (4)
  1. IPRATROPIUM BROMIDE AND ALBUTEROL SULFATE INHALATION SOLUTION [Suspect]
     Indication: CHRONIC OBSTRUCTIVE PULMONARY DISEASE
     Route: 055
     Dates: start: 20130925, end: 20130925
  2. IPRATROPIUM BROMIDE AND ALBUTEROL SULFATE INHALATION SOLUTION [Suspect]
     Indication: PULMONARY MASS
     Route: 055
     Dates: start: 20130925, end: 20130925
  3. IPRATROPIUM BROMIDE AND ALBUTEROL SULFATE INHALATION SOLUTION [Suspect]
     Indication: OFF LABEL USE
     Route: 055
     Dates: start: 20130925, end: 20130925
  4. TUSSIN CHEST CONGESTION SYRUP [Concomitant]
     Indication: PULMONARY CONGESTION
     Dosage: THIS IS GUAIFENESIN.
     Route: 048

REACTIONS (2)
  - Expired product administered [Recovered/Resolved]
  - No adverse event [Recovered/Resolved]
